FAERS Safety Report 9222437 (Version 1)
Quarter: 2013Q1

REPORT INFORMATION
  Report Type: Spontaneous
  Country: US (occurrence: None)
  Receive Date: 20120914
  Receipt Date: 20120914
  Transmission Date: 20140127
  Serious: Yes (Other)
  Sender: FDA-Public Use
  Company Number: JPI-P-022024

PATIENT
  Age: 46 Year
  Sex: Male
  Weight: 157 kg

DRUGS (9)
  1. XYREM (500 MILLIGRAM/MILLILITERS, SOLUTION) (SODIUM OXYBATE) [Suspect]
     Indication: FIBROMYALGIA
     Route: 048
     Dates: start: 20091012
  2. LISINOPRIL [Suspect]
     Indication: BLOOD PRESSURE INCREASED
  3. ROSUVASTATIN [Concomitant]
  4. PREGABALIN [Concomitant]
  5. BUPROPION [Concomitant]
  6. CYCLOSPORINE OPHTHALMIC [Concomitant]
  7. NALTREXONE [Concomitant]
  8. ESOMEPRAZOLE [Concomitant]
  9. TADALAFIL [Concomitant]

REACTIONS (3)
  - Blood pressure diastolic increased [None]
  - Hypotension [None]
  - Dizziness [None]
